FAERS Safety Report 25490421 (Version 1)
Quarter: 2025Q2

REPORT INFORMATION
  Report Type: Spontaneous
  Country: ES (occurrence: ES)
  Receive Date: 20250628
  Receipt Date: 20250628
  Transmission Date: 20250717
  Serious: Yes (Hospitalization, Other)
  Sender: MERCK SHARP & DOHME LLC
  Company Number: None

PATIENT
  Age: 59 Year
  Sex: Female

DRUGS (1)
  1. KEYTRUDA [Suspect]
     Active Substance: PEMBROLIZUMAB
     Indication: Lung adenocarcinoma
     Dosage: DOSE DESCRIPTION : 2MG/KG EVERY 21 DAYS HAS RECEIVED 2 CYCLES?DAILY DOSE : 2.286 MILLIGRAM/KILOGRAM
     Route: 042
     Dates: start: 20240920, end: 20241010

REACTIONS (2)
  - Immune-mediated cholestasis [Recovered/Resolved]
  - Immune-mediated myositis [Recovered/Resolved]

NARRATIVE: CASE EVENT DATE: 20241031
